APPROVED DRUG PRODUCT: WARFARIN SODIUM
Active Ingredient: WARFARIN SODIUM
Strength: 6MG
Dosage Form/Route: TABLET;ORAL
Application: A202202 | Product #007 | TE Code: AB
Applicant: AMNEAL PHARMACEUTICALS
Approved: Mar 4, 2013 | RLD: No | RS: No | Type: RX